FAERS Safety Report 26053295 (Version 1)
Quarter: 2025Q4

REPORT INFORMATION
  Report Type: Spontaneous
  Country: US (occurrence: None)
  Receive Date: 20251115
  Receipt Date: 20251115
  Transmission Date: 20260118
  Serious: Yes (unspecified)
  Sender: FDA-CTU
  Company Number: None

PATIENT
  Age: 42 Year
  Sex: Female
  Weight: 99 kg

DRUGS (5)
  1. ROMPE PECHO [Suspect]
     Active Substance: GUAIFENESIN
     Indication: Nasal congestion
     Dosage: OTHER QUANTITY : 20 20ML;?FREQUENCY : EVERY 4 HOURS;?
     Route: 048
     Dates: start: 20251113, end: 20251114
  2. ROMPE PECHO [Suspect]
     Active Substance: GUAIFENESIN
     Indication: Cough
  3. ROMPE PECHO [Suspect]
     Active Substance: GUAIFENESIN
     Indication: Pain
  4. METHIMAZOLE [Concomitant]
     Active Substance: METHIMAZOLE
  5. PROPRANOLOL [Concomitant]
     Active Substance: PROPRANOLOL HYDROCHLORIDE

REACTIONS (1)
  - Migraine [None]

NARRATIVE: CASE EVENT DATE: 20251114
